FAERS Safety Report 18897830 (Version 1)
Quarter: 2021Q1

REPORT INFORMATION
  Report Type: Spontaneous
  Country: US (occurrence: US)
  Receive Date: 20210212
  Receipt Date: 20210212
  Transmission Date: 20210420
  Serious: Yes (Hospitalization)
  Sender: FDA-Public Use
  Company Number: None

PATIENT
  Age: 67 Year
  Sex: Female
  Weight: 98.9 kg

DRUGS (1)
  1. ASPIRIN. [Suspect]
     Active Substance: ASPIRIN
     Dates: end: 20210210

REACTIONS (5)
  - Skin infection [None]
  - Dyspnoea [None]
  - Cellulitis [None]
  - Nausea [None]
  - Breast cellulitis [None]

NARRATIVE: CASE EVENT DATE: 20210210
